FAERS Safety Report 24194970 (Version 4)
Quarter: 2024Q4

REPORT INFORMATION
  Report Type: Spontaneous
  Country: US (occurrence: US)
  Receive Date: 20240809
  Receipt Date: 20241204
  Transmission Date: 20250115
  Serious: No
  Sender: PFIZER
  Company Number: US-PFIZER INC-PV202400103003

PATIENT
  Age: 81 Year
  Sex: Female
  Weight: 129 kg

DRUGS (1)
  1. IBRANCE [Suspect]
     Active Substance: PALBOCICLIB
     Indication: Breast cancer female
     Dosage: 125 MG, CYCLIC (TAKE DAILY FOR 21 DAYS ON FOLLOWED BY 7 DAYS OFF)
     Route: 048

REACTIONS (11)
  - Blood disorder [Unknown]
  - Blood sodium decreased [Unknown]
  - Blood glucose increased [Unknown]
  - Blood osmolarity decreased [Unknown]
  - Lymphatic disorder [Unknown]
  - Respiratory disorder [Unknown]
  - Skin disorder [Unknown]
  - Aspartate aminotransferase increased [Unknown]
  - Nervous system disorder [Unknown]
  - General physical health deterioration [Unknown]
  - Blood pressure increased [Unknown]

NARRATIVE: CASE EVENT DATE: 20240724
